FAERS Safety Report 4388601-0 (Version None)
Quarter: 2004Q2

REPORT INFORMATION
  Report Type: 
  Country: None (occurrence: None)
  Receive Date: 20040624
  Receipt Date: 20040611
  Transmission Date: 20050107
  Serious: Yes (Other)
  Sender: FDA-Public Use
  Company Number: 2004035107

PATIENT
  Age: 70 Year
  Sex: Female
  Weight: 49.3 kg

DRUGS (6)
  1. UNASYN [Suspect]
     Indication: PNEUMONIA
     Dosage: 3 GRAM (2), INTRAVENOUS
     Route: 042
     Dates: start: 20040405
  2. CEFOTIAM HEXETIL HYDROCHLORIDE (CEFOTIAM HEXETIL HYDROCHLORIDE) [Suspect]
     Indication: ILL-DEFINED DISORDER
     Dosage: 200 MG
     Dates: start: 20040426
  3. HEPARIN SODIUM [Concomitant]
  4. CARPERITIDE (CARPERITIDE) [Concomitant]
  5. POTASSIUM CHLORIDE [Concomitant]
  6. FUROSEMIDE [Concomitant]

REACTIONS (1)
  - CLOSTRIDIUM COLITIS [None]
